FAERS Safety Report 15683594 (Version 1)
Quarter: 2018Q4

REPORT INFORMATION
  Report Type: Spontaneous
  Country: FI (occurrence: FI)
  Receive Date: 20181204
  Receipt Date: 20181204
  Transmission Date: 20190205
  Serious: Yes (Hospitalization)
  Sender: FDA-Public Use
  Company Number: FI-ASTRAZENECA-2018SF55535

PATIENT
  Age: 63 Year
  Sex: Female

DRUGS (17)
  1. THYROXIN [Concomitant]
     Active Substance: LEVOTHYROXINE
     Indication: HYPOTHYROIDISM
     Route: 048
     Dates: start: 201506
  2. EMGESAN [Concomitant]
     Active Substance: MAGNESIUM HYDROXIDE
     Indication: MINERAL SUPPLEMENTATION
     Dosage: 250,MG,DAILY
     Route: 048
     Dates: start: 201711
  3. IMODIUM [Concomitant]
     Active Substance: LOPERAMIDE HYDROCHLORIDE
     Indication: DIARRHOEA
     Dosage: ,,AS NECESSARY
     Route: 048
     Dates: start: 201807
  4. TRIMOPAN [Concomitant]
     Dosage: 100,MG,DAILY
     Route: 048
     Dates: start: 201807
  5. HEINIX [Concomitant]
     Active Substance: CETIRIZINE HYDROCHLORIDE
     Indication: HYPERSENSITIVITY
     Dosage: ,,AS NECESSARY
     Route: 048
     Dates: start: 201704
  6. BISOPROLOL [Concomitant]
     Active Substance: BISOPROLOL
     Indication: HYPERTENSION
     Dosage: 3.75,MG,DAILY
     Route: 048
     Dates: start: 201801
  7. PANADOL FORTE [Concomitant]
     Indication: PAIN
     Dosage: ,,AS NECESSARY
     Route: 048
  8. PEGORION [Concomitant]
     Active Substance: POLYETHYLENE GLYCOL 4000
     Indication: CONSTIPATION
     Dosage: ,,AS NECESSARY
  9. DEXAMETASON [Concomitant]
     Active Substance: DEXAMETHASONE
     Indication: LUNG ADENOCARCINOMA
     Dosage: 1.5,MG,DAILY
     Route: 048
     Dates: start: 201707
  10. LAXOBERON [Concomitant]
     Active Substance: SODIUM PICOSULFATE
     Indication: CONSTIPATION
     Dosage: ,,AS NECESSARY
     Route: 048
     Dates: start: 201807
  11. KALEORID [Concomitant]
     Active Substance: POTASSIUM CHLORIDE
     Indication: MINERAL SUPPLEMENTATION
     Dosage: 1,G,DAILY
     Route: 048
     Dates: start: 201708
  12. PRIMPERAN [Concomitant]
     Active Substance: METOCLOPRAMIDE HYDROCHLORIDE
     Indication: NAUSEA
     Dosage: ,,AS NECESSARY
  13. INNOHEP [Concomitant]
     Active Substance: TINZAPARIN SODIUM
     Indication: ANTICOAGULANT THERAPY
     Dosage: 4500,IU,DAILY
     Route: 058
     Dates: start: 201803
  14. ZOLT [Concomitant]
     Active Substance: LANSOPRAZOLE
     Dosage: 15,MG,DAILY
     Route: 048
     Dates: start: 201606
  15. OFTAGEL [Concomitant]
     Active Substance: CARBOMER
     Indication: DRY EYE
     Dosage: ,,AS NECESSARY
  16. TAGRISSO [Suspect]
     Active Substance: OSIMERTINIB
     Indication: LUNG ADENOCARCINOMA
     Route: 048
     Dates: start: 201803, end: 201809
  17. LIBRAX [Concomitant]
     Active Substance: CHLORDIAZEPOXIDE HYDROCHLORIDE\CLIDINIUM BROMIDE
     Indication: DIARRHOEA
     Dosage: ,,AS NECESSARY
     Route: 048

REACTIONS (3)
  - Pulmonary embolism [Not Recovered/Not Resolved]
  - Pulmonary infarction [Not Recovered/Not Resolved]
  - Deep vein thrombosis [Not Recovered/Not Resolved]

NARRATIVE: CASE EVENT DATE: 20180902
